FAERS Safety Report 7699515-2 (Version None)
Quarter: 2011Q3

REPORT INFORMATION
  Report Type: 
  Country: None (occurrence: None)
  Receive Date: 20110820
  Receipt Date: 20110516
  Transmission Date: 20111222
  Serious: No
  Sender: FDA-Public Use
  Company Number: US-ALLERGAN-1106696US

PATIENT
  Age: 81 Year
  Sex: Male

DRUGS (2)
  1. SANCTURA XR [Suspect]
     Indication: HYPERTONIC BLADDER
     Dosage: 60 MG, QAM
     Dates: start: 20110512, end: 20110515
  2. ADVODORT [Concomitant]
     Indication: PROSTATIC DISORDER
     Dosage: UNK

REACTIONS (3)
  - DYSSTASIA [None]
  - CONSTIPATION [None]
  - GAIT DISTURBANCE [None]
